FAERS Safety Report 4831013-3 (Version None)
Quarter: 2005Q4

REPORT INFORMATION
  Report Type: 
  Country: None (occurrence: None)
  Receive Date: 20051115
  Receipt Date: 20051115
  Transmission Date: 20060501
  Serious: Yes (Life-Threatening, Hospitalization)
  Sender: FDA-Public Use
  Company Number: None

PATIENT
  Age: 68 Year
  Sex: Female
  Weight: 52.8 kg

DRUGS (8)
  1. CELEBREX [Suspect]
     Indication: ARTHRALGIA
     Dosage: 200 MG PO DAILY
     Route: 048
     Dates: start: 20050703, end: 20050803
  2. FLUCONAZOLE [Suspect]
     Indication: VULVOVAGINAL MYCOTIC INFECTION
     Dosage: 100 MG PO DAILY
     Route: 048
     Dates: start: 20050703, end: 20050803
  3. PLAQUENIL [Concomitant]
  4. AVALIDE [Concomitant]
  5. PROTONIX [Concomitant]
  6. FOLATE [Concomitant]
  7. ASPIRIN [Concomitant]
  8. AMBREN [Concomitant]

REACTIONS (5)
  - DIARRHOEA [None]
  - FAECES DISCOLOURED [None]
  - STEVENS-JOHNSON SYNDROME [None]
  - THERAPY NON-RESPONDER [None]
  - TOXIC EPIDERMAL NECROLYSIS [None]
